FAERS Safety Report 24561878 (Version 1)
Quarter: 2024Q4

REPORT INFORMATION
  Report Type: Spontaneous
  Country: US (occurrence: US)
  Receive Date: 20241029
  Receipt Date: 20241029
  Transmission Date: 20250114
  Serious: Yes (Hospitalization)
  Sender: BEXIMCO PHARMACEUTICALS
  Company Number: US-BEXIMCO-2024BEX00044

PATIENT
  Age: 8 Decade
  Sex: Female

DRUGS (1)
  1. BACLOFEN [Suspect]
     Active Substance: BACLOFEN

REACTIONS (6)
  - Intentional overdose [Unknown]
  - Toxicity to various agents [Recovering/Resolving]
  - Hypertension [Recovering/Resolving]
  - Stress cardiomyopathy [Recovering/Resolving]
  - Respiratory depression [Recovering/Resolving]
  - Hypotension [Recovered/Resolved]
